FAERS Safety Report 5059525-0 (Version None)
Quarter: 2006Q3

REPORT INFORMATION
  Report Type: 
  Country: None (occurrence: None)
  Receive Date: 20060724
  Receipt Date: 20060607
  Transmission Date: 20061208
  Serious: Yes (Hospitalization)
  Sender: FDA-Public Use
  Company Number: JP-SP-2006-01781

PATIENT
  Age: 61 Year
  Sex: Male

DRUGS (3)
  1. IMMUCYST [Suspect]
     Indication: BLADDER CANCER
     Route: 043
     Dates: start: 20060303, end: 20060407
  2. IMMUCYST [Suspect]
     Route: 043
     Dates: start: 20060303, end: 20060407
  3. IMMUCYST [Suspect]
     Route: 043
     Dates: start: 20060303, end: 20060407

REACTIONS (3)
  - DYSURIA [None]
  - HAEMATURIA [None]
  - WHITE BLOOD CELLS URINE POSITIVE [None]
